FAERS Safety Report 8421721-X (Version None)
Quarter: 2012Q2

REPORT INFORMATION
  Report Type: 
  Country: None (occurrence: None)
  Receive Date: 20120608
  Receipt Date: 20120525
  Transmission Date: 20120825
  Serious: Yes (Other)
  Sender: FDA-Public Use
  Company Number: SE-MYLANLABS-2012S1010805

PATIENT
  Age: 38 Year
  Sex: Female

DRUGS (4)
  1. TAMOXIFEN CITRATE [Suspect]
     Indication: BREAST CANCER
     Dates: start: 20110501
  2. TAMOXIFEN CITRATE [Suspect]
  3. TAMOXIFEN CITRATE [Suspect]
     Dates: start: 20120201
  4. MULTI-VITAMIN [Concomitant]
     Indication: PRODUCT USED FOR UNKNOWN INDICATION

REACTIONS (4)
  - NAUSEA [None]
  - DEPRESSION [None]
  - VERTIGO [None]
  - IRRITABILITY [None]
